FAERS Safety Report 7157273-4 (Version None)
Quarter: 2010Q4

REPORT INFORMATION
  Report Type: 
  Country: None (occurrence: None)
  Receive Date: 20101214
  Receipt Date: 20101208
  Transmission Date: 20110411
  Serious: Yes (Death, Other)
  Sender: FDA-Public Use
  Company Number: PHHY2010JP80505

PATIENT
  Age: 67 Year
  Sex: Male

DRUGS (15)
  1. AFINITOR [Suspect]
     Indication: METASTATIC RENAL CELL CARCINOMA
     Dosage: 10 MG DAILY
     Route: 048
     Dates: start: 20100712, end: 20100830
  2. AFINITOR [Suspect]
     Dosage: 5 MG, DAILY
     Route: 048
     Dates: start: 20101101, end: 20101112
  3. INTERFERON ALFA [Concomitant]
     Dosage: 6000000 IU, UNK
     Dates: start: 20070601, end: 20081101
  4. TECELEUKIN [Concomitant]
     Dosage: UNK
     Dates: start: 20081201
  5. SUNITINIB MALATE [Concomitant]
     Dosage: 37.5 MG, UNK
     Route: 048
     Dates: start: 20081101, end: 20100712
  6. ALOSITOL [Concomitant]
     Dosage: 300 MG, UNK
     Route: 048
     Dates: start: 20100712
  7. ALOSITOL [Concomitant]
     Dosage: 300 MG, UNK
     Route: 048
     Dates: start: 20101115
  8. THYRADIN [Concomitant]
     Dosage: 50 UG, UNK
     Route: 048
     Dates: start: 20100712
  9. THYRADIN [Concomitant]
     Dosage: 300 UG, UNK
     Route: 048
     Dates: start: 20101115
  10. URSO 250 [Concomitant]
     Dosage: 300 MG, UNK
     Route: 048
     Dates: start: 20100712, end: 20100830
  11. HYPEN [Concomitant]
     Dosage: 400 MG, UNK
     Route: 048
     Dates: start: 20101101, end: 20101115
  12. OXYCONTIN [Concomitant]
     Dosage: 40 MG, UNK
     Route: 048
     Dates: start: 20101101, end: 20101115
  13. MAGNESIUM OXIDE [Concomitant]
     Dosage: 750 MG, UNK
     Route: 048
     Dates: start: 20101101, end: 20101115
  14. NOVAMIN [Concomitant]
     Dosage: 10 MG, UNK
     Route: 048
     Dates: start: 20101101, end: 20101115
  15. BETAMETHASONE [Concomitant]
     Dosage: 3 MG, UNK
     Route: 048
     Dates: start: 20101101, end: 20101115

REACTIONS (4)
  - CARDIO-RESPIRATORY ARREST [None]
  - DEATH [None]
  - DECREASED APPETITE [None]
  - MALAISE [None]
